FAERS Safety Report 9106685 (Version 3)
Quarter: 2013Q2

REPORT INFORMATION
  Report Type: Report from Study
  Country: CA (occurrence: CA)
  Receive Date: 20130221
  Receipt Date: 20130529
  Transmission Date: 20140414
  Serious: Yes (Other)
  Sender: FDA-Public Use
  Company Number: CA-UCBSA-078361

PATIENT
  Age: 62 Year
  Sex: Female
  Weight: 150 kg

DRUGS (15)
  1. CIMZIA [Suspect]
     Indication: RHEUMATOID ARTHRITIS
     Route: 058
     Dates: start: 20120605, end: 20130203
  2. CIMZIA [Suspect]
     Indication: RHEUMATOID ARTHRITIS
     Route: 058
     Dates: start: 20120424, end: 20120522
  3. RAMIPRIL [Concomitant]
     Indication: HYPERTENSION
     Dosage: UNKNOWN DOSE
     Route: 048
  4. ADALAT [Concomitant]
     Indication: HYPERTENSION
     Dosage: UNKNOWN DOSE
     Route: 048
  5. THYROXIN [Concomitant]
     Indication: HYPOTHYROIDISM
     Dosage: UNKNOWN DOSE
     Route: 048
  6. LASIX [Concomitant]
     Indication: SWELLING
     Dosage: AS REQUIRED
     Route: 048
  7. VENTOLIN [Concomitant]
     Indication: ASTHMA
     Dosage: AS REQUIRED
     Route: 055
  8. SERVENT [Concomitant]
     Indication: ASTHMA
     Dosage: UNKNOWN DOSE
     Route: 055
  9. HERBAL HCL MED [Concomitant]
     Indication: HYPERCHOLESTEROLAEMIA
  10. LOSEC [Concomitant]
     Indication: HIATUS HERNIA
     Route: 048
  11. QUERCETIN [Concomitant]
     Indication: SINUS DISORDER
     Route: 048
  12. VIT D [Concomitant]
     Indication: SUPPLEMENTATION THERAPY
     Route: 048
  13. CALCIUM [Concomitant]
     Indication: SUPPLEMENTATION THERAPY
     Route: 048
  14. ASPIRIN [Concomitant]
     Indication: PAIN
     Route: 048
  15. ZINC UNG [Concomitant]
     Indication: PSORIASIS
     Dosage: AS REQUIRED
     Route: 061
     Dates: start: 201205

REACTIONS (3)
  - Squamous cell carcinoma [Recovered/Resolved]
  - Precancerous skin lesion [Not Recovered/Not Resolved]
  - Type 2 diabetes mellitus [Not Recovered/Not Resolved]
